FAERS Safety Report 23171142 (Version 6)
Quarter: 2024Q1

REPORT INFORMATION
  Report Type: Spontaneous
  Country: US (occurrence: US)
  Receive Date: 20231110
  Receipt Date: 20240326
  Transmission Date: 20240410
  Serious: Yes (Other)
  Sender: FDA-Public Use
  Company Number: US-GLAXOSMITHKLINE-US2023151584

PATIENT
  Sex: Female

DRUGS (6)
  1. ZEJULA [Suspect]
     Active Substance: NIRAPARIB
     Indication: Endometrial cancer
     Dosage: 200 MG, QD
     Route: 048
     Dates: start: 20230907
  2. ZEJULA [Suspect]
     Active Substance: NIRAPARIB
     Indication: Endometrial cancer
     Dosage: 200 MG, QD
     Route: 048
  3. ZEJULA [Suspect]
     Active Substance: NIRAPARIB
     Dosage: 200MG SUNDAY, TUESDAY, WEDNESDAYTHURSDAY, AND SATURDAY AND 100MG MONDAY AND FRIDAY
  4. ZEJULA [Suspect]
     Active Substance: NIRAPARIB
     Dosage: 100 MG, BID
     Route: 048
  5. ZEJULA [Suspect]
     Active Substance: NIRAPARIB
     Dosage: 200 MG, QD
     Route: 048
  6. ZEJULA [Suspect]
     Active Substance: NIRAPARIB
     Dosage: UNK (TAKING (2) 100MG TABLETS 5 DAYS/WEEK AND (1) 100MG TABLET ONE DAY/ WEEK)

REACTIONS (34)
  - Ascites [Unknown]
  - Fatigue [Not Recovered/Not Resolved]
  - Lethargy [Unknown]
  - Feeling abnormal [Unknown]
  - Pain in extremity [Unknown]
  - Abdominal discomfort [Recovering/Resolving]
  - Nausea [Unknown]
  - Brain fog [Unknown]
  - Rhinorrhoea [Unknown]
  - Throat irritation [Unknown]
  - Abnormal faeces [Unknown]
  - Sleep disorder [Unknown]
  - Hernia [Unknown]
  - Blood pressure increased [Unknown]
  - Tachycardia [Unknown]
  - Headache [Unknown]
  - Mean cell volume increased [Unknown]
  - Mean cell haemoglobin increased [Unknown]
  - Red blood cell count decreased [Unknown]
  - Blood calcium increased [Unknown]
  - Hypertension [Unknown]
  - Dizziness [Unknown]
  - Lymphocyte count increased [Unknown]
  - Tooth disorder [Unknown]
  - Incisional hernia [Unknown]
  - Inguinal hernia [Unknown]
  - Gastrointestinal disorder [Unknown]
  - Blood pressure diastolic increased [Unknown]
  - Carbohydrate antigen 125 increased [Unknown]
  - Pulse abnormal [Unknown]
  - Tooth infection [Unknown]
  - Seasonal allergy [Unknown]
  - Off label use [Unknown]
  - Product use in unapproved indication [Unknown]
